FAERS Safety Report 14340938 (Version 1)
Quarter: 2018Q1

REPORT INFORMATION
  Report Type: Spontaneous
  Country: GB (occurrence: GB)
  Receive Date: 20180102
  Receipt Date: 20180102
  Transmission Date: 20180509
  Serious: Yes (Death)
  Sender: FDA-Public Use
  Company Number: GB-INSYS THERAPEUTICS, INC-INS201712-000783

PATIENT
  Age: 25 Year
  Sex: Male

DRUGS (12)
  1. FENTANYL. [Suspect]
     Active Substance: FENTANYL
     Indication: PRODUCT USED FOR UNKNOWN INDICATION
  2. NORDIAZEPAM [Suspect]
     Active Substance: NORDAZEPAM
  3. THC [Suspect]
     Active Substance: DRONABINOL
  4. PARACETAMOL [Suspect]
     Active Substance: ACETAMINOPHEN
  5. DIAZEPAM. [Suspect]
     Active Substance: DIAZEPAM
  6. BUTYRYLFENTANYL [Suspect]
     Active Substance: BUTYRFENTANYL
  7. NORFENTANYL [Suspect]
     Active Substance: NORFENTANYL
  8. CODEINE [Suspect]
     Active Substance: CODEINE
  9. FURANYLFENATNYL [Suspect]
     Active Substance: FURANYLFENTANYL
  10. TEMAZEPAM. [Suspect]
     Active Substance: TEMAZEPAM
  11. CARFENTANIL [Suspect]
     Active Substance: CARFENTANIL
  12. OXAZEPAM. [Suspect]
     Active Substance: OXAZEPAM

REACTIONS (3)
  - Haemorrhage [None]
  - Toxicity to various agents [Fatal]
  - Depressed level of consciousness [Fatal]

NARRATIVE: CASE EVENT DATE: 2017
